FAERS Safety Report 5404197-6 (Version None)
Quarter: 2007Q3

REPORT INFORMATION
  Report Type: 
  Country: None (occurrence: None)
  Receive Date: 20070802
  Receipt Date: 20070726
  Transmission Date: 20080115
  Serious: Yes (Other)
  Sender: FDA-Public Use
  Company Number: CA-ROCHE-471071

PATIENT
  Age: 33 Year
  Sex: Male

DRUGS (2)
  1. PEGASYS [Suspect]
     Indication: HEPATITIS C
     Dosage: FORMULATION: PREFILLED SYRINGE.
     Route: 058
     Dates: start: 20041210, end: 20051111
  2. COPEGUS [Suspect]
     Indication: HEPATITIS C
     Route: 048
     Dates: start: 20041210, end: 20051111

REACTIONS (3)
  - ASTIGMATISM [None]
  - COELIAC DISEASE [None]
  - MALABSORPTION [None]
